FAERS Safety Report 21327947 (Version 2)
Quarter: 2022Q4

REPORT INFORMATION
  Report Type: Spontaneous
  Country: US (occurrence: US)
  Receive Date: 20220913
  Receipt Date: 20221017
  Transmission Date: 20230113
  Serious: No
  Sender: FDA-Public Use
  Company Number: US-SA-SAC20220907000701

PATIENT
  Sex: Female

DRUGS (1)
  1. DUPIXENT [Suspect]
     Active Substance: DUPILUMAB
     Indication: Dermatitis atopic
     Dosage: 200 MG, QOW
     Route: 058
     Dates: start: 202110

REACTIONS (8)
  - Iris cyst [Unknown]
  - Scab [Recovering/Resolving]
  - Pustule [Recovering/Resolving]
  - Wound [Recovering/Resolving]
  - Erythema [Recovered/Resolved]
  - Ocular hyperaemia [Unknown]
  - Eczema [Recovering/Resolving]
  - Eye irritation [Unknown]
